FAERS Safety Report 22647291 (Version 1)
Quarter: 2023Q2

REPORT INFORMATION
  Report Type: Spontaneous
  Country: US (occurrence: US)
  Receive Date: 20230627
  Receipt Date: 20230627
  Transmission Date: 20230722
  Serious: No
  Sender: FDA-Public Use
  Company Number: US-PRINSTON PHARMACEUTICAL INC.-2022PRN00248

PATIENT
  Sex: Female
  Weight: 66.667 kg

DRUGS (7)
  1. DULOXETINE [Suspect]
     Active Substance: DULOXETINE
     Indication: Pain
     Dosage: 20 MG, 1X/DAY
     Route: 048
     Dates: start: 20220529, end: 202206
  2. FISH OIL [Concomitant]
     Active Substance: FISH OIL
  3. VITAMIN D [Concomitant]
     Active Substance: VITAMIN D NOS
  4. LORATADINE [Concomitant]
     Active Substance: LORATADINE
  5. MONTELUKAST [Concomitant]
     Active Substance: MONTELUKAST SODIUM
  6. ALBUTEROL [Concomitant]
     Active Substance: ALBUTEROL
  7. ATORVASTATIN [Concomitant]
     Active Substance: ATORVASTATIN

REACTIONS (11)
  - Musculoskeletal stiffness [Recovering/Resolving]
  - Lymphadenopathy [Recovering/Resolving]
  - Cheilitis [Recovered/Resolved]
  - Pain in extremity [Recovered/Resolved]
  - Electric shock sensation [Recovering/Resolving]
  - Headache [Recovering/Resolving]
  - Vision blurred [Not Recovered/Not Resolved]
  - Middle insomnia [Unknown]
  - Oropharyngeal discomfort [Unknown]
  - Neck pain [Unknown]
  - Hyperhidrosis [Unknown]

NARRATIVE: CASE EVENT DATE: 20220101
